FAERS Safety Report 9260647 (Version 3)
Quarter: 2013Q2

REPORT INFORMATION
  Report Type: Spontaneous
  Country: US (occurrence: US)
  Receive Date: 20130429
  Receipt Date: 20130524
  Transmission Date: 20140414
  Serious: Yes (Hospitalization, Other)
  Sender: FDA-Public Use
  Company Number: US-PFIZER INC-2013133291

PATIENT
  Age: 44 Year
  Sex: Female
  Weight: 90.7 kg

DRUGS (10)
  1. EFFEXOR XR [Suspect]
     Indication: DEPRESSION
     Dosage: 150 MG, 2X/DAY
     Route: 048
     Dates: start: 200711
  2. LYRICA [Suspect]
     Indication: MYALGIA
     Dosage: 50 MG, 3X/DAY
     Route: 048
  3. LYRICA [Suspect]
     Indication: MIGRAINE
  4. TYSABRI [Concomitant]
     Indication: MULTIPLE SCLEROSIS
     Dosage: UNK
     Dates: start: 2008
  5. DIAZEPAM [Concomitant]
     Dosage: UNK
  6. FROVA [Concomitant]
     Dosage: UNK
  7. INDOMETHACIN [Concomitant]
     Dosage: UNK
  8. METHADONE [Concomitant]
     Dosage: UNK
  9. NADOLOL [Concomitant]
     Dosage: UNK
  10. BENADRYL [Concomitant]
     Dosage: UNK

REACTIONS (11)
  - Central nervous system lesion [Unknown]
  - Diplopia [Unknown]
  - Myalgia [Unknown]
  - Malaise [Unknown]
  - Oropharyngeal pain [Unknown]
  - Strabismus [Unknown]
  - Dizziness [Unknown]
  - Confusional state [Unknown]
  - Speech disorder [Unknown]
  - Weight increased [Unknown]
  - Off label use [Not Recovered/Not Resolved]
